FAERS Safety Report 6493132-8 (Version None)
Quarter: 2009Q4

REPORT INFORMATION
  Report Type: 
  Country: None (occurrence: None)
  Receive Date: 20091211
  Receipt Date: 20091211
  Transmission Date: 20100525
  Serious: No
  Sender: FDA-Public Use
  Company Number: None

PATIENT
  Sex: Female
  Weight: 58.9676 kg

DRUGS (2)
  1. LYRICA [Suspect]
     Indication: NEURALGIA
     Dosage: 150 MG QID PO
     Route: 048
     Dates: start: 20071201, end: 20091209
  2. GABAPENTIN [Suspect]
     Indication: NEURALGIA
     Dosage: 300 MG TID PO
     Route: 048
     Dates: start: 20090601, end: 20091208

REACTIONS (3)
  - CYSTITIS [None]
  - DIPLOPIA [None]
  - PNEUMONIA [None]
